FAERS Safety Report 15578202 (Version 4)
Quarter: 2019Q1

REPORT INFORMATION
  Report Type: Report from Study
  Country: US (occurrence: US)
  Receive Date: 20181102
  Receipt Date: 20190205
  Transmission Date: 20190417
  Serious: Yes (Hospitalization, Other)
  Sender: FDA-Public Use
  Company Number: US-TAKEDA-2018TUS031283

PATIENT
  Age: 71 Year
  Sex: Female

DRUGS (1)
  1. PONATINIB [Suspect]
     Active Substance: PONATINIB
     Indication: CHRONIC MYELOID LEUKAEMIA
     Dosage: 45 MG, QD
     Route: 048
     Dates: start: 20180914

REACTIONS (12)
  - Platelet count decreased [Unknown]
  - Muscular weakness [Unknown]
  - Blood pressure increased [Unknown]
  - Neoplasm progression [Unknown]
  - White blood cell count increased [Unknown]
  - Skin exfoliation [Unknown]
  - Dehydration [Unknown]
  - Gait inability [Unknown]
  - Back pain [Unknown]
  - Full blood count decreased [Unknown]
  - Pain [Not Recovered/Not Resolved]
  - Neuralgia [Unknown]

NARRATIVE: CASE EVENT DATE: 201810
